FAERS Safety Report 12406953 (Version 1)
Quarter: 2016Q2

REPORT INFORMATION
  Report Type: Spontaneous
  Country: FR (occurrence: FR)
  Receive Date: 20160526
  Receipt Date: 20160526
  Transmission Date: 20160815
  Serious: Yes (Death, Hospitalization, Other)
  Sender: FDA-Public Use
  Company Number: FR-MDT-ADR-2016-00946

PATIENT
  Age: 30 Year
  Sex: Male

DRUGS (1)
  1. BACLOFEN. [Suspect]
     Active Substance: BACLOFEN
     Dosage: 320 MG DAILY
     Route: 065

REACTIONS (4)
  - Off label use [Unknown]
  - Delirium [Unknown]
  - Fall [Fatal]
  - Mania [Unknown]
